FAERS Safety Report 6085977-3 (Version None)
Quarter: 2009Q1

REPORT INFORMATION
  Report Type: 
  Country: None (occurrence: None)
  Receive Date: 20090220
  Receipt Date: 20090212
  Transmission Date: 20090719
  Serious: Yes (Disabling)
  Sender: FDA-Public Use
  Company Number: AU-ALLERGAN-0901798US

PATIENT
  Sex: Female
  Weight: 60 kg

DRUGS (1)
  1. BOTOX [Suspect]
     Indication: MIGRAINE
     Dosage: 50 UNITS, SINGLE
     Route: 030
     Dates: start: 20080909, end: 20080909

REACTIONS (1)
  - VISUAL ACUITY REDUCED [None]
